FAERS Safety Report 9797868 (Version 1)
Quarter: 2014Q1

REPORT INFORMATION
  Report Type: Spontaneous
  Country: US (occurrence: US)
  Receive Date: 20140106
  Receipt Date: 20140106
  Transmission Date: 20141002
  Serious: Yes (Hospitalization)
  Sender: FDA-Public Use
  Company Number: US-BAYER-2014-001556

PATIENT
  Age: 19 Year
  Sex: Female
  Weight: 90.7 kg

DRUGS (6)
  1. YAZ [Suspect]
  2. YASMIN [Suspect]
  3. ALBUTEROL [Concomitant]
     Dosage: 90 MCG/ ACT, 2 INHALATION Q 4 HOUR PRN
  4. IBUPROFEN [Concomitant]
  5. VICODIN [Concomitant]
  6. PERCOCET [Concomitant]

REACTIONS (1)
  - Pulmonary embolism [None]
